FAERS Safety Report 9616515 (Version 1)
Quarter: 2013Q4

REPORT INFORMATION
  Report Type: Spontaneous
  Country: US (occurrence: None)
  Receive Date: 20131010
  Receipt Date: 20131010
  Transmission Date: 20140711
  Serious: Yes (Other)
  Sender: FDA-Public Use
  Company Number: None

PATIENT
  Age: 69 Year
  Sex: Female
  Weight: 58.06 kg

DRUGS (1)
  1. PRAVASTATIN, 20 MG [Suspect]
     Indication: BLOOD CHOLESTEROL INCREASED
     Route: 048
     Dates: start: 20120424, end: 20130605

REACTIONS (3)
  - Muscular weakness [None]
  - Fatigue [None]
  - Exercise tolerance decreased [None]
